FAERS Safety Report 24114080 (Version 1)
Quarter: 2024Q3

REPORT INFORMATION
  Report Type: Spontaneous
  Country: US (occurrence: US)
  Receive Date: 20240720
  Receipt Date: 20240720
  Transmission Date: 20241017
  Serious: No
  Sender: ABBVIE
  Company Number: US-ABBVIE-5842152

PATIENT
  Age: 32 Year
  Sex: Female
  Weight: 61 kg

DRUGS (5)
  1. LASTACAFT [Suspect]
     Active Substance: ALCAFTADINE
     Indication: Dry eye
     Dosage: 1 DROP EACH EYE
     Route: 047
     Dates: start: 20240712, end: 20240712
  2. LASTACAFT [Suspect]
     Active Substance: ALCAFTADINE
     Indication: Dry eye
     Dosage: 1 DROP EACH EYE?LAST ADMIN DATE WAS 04 JUN 2024
     Route: 047
     Dates: start: 2024
  3. SUDAFED [Concomitant]
     Active Substance: PSEUDOEPHEDRINE HYDROCHLORIDE
     Indication: Sinus disorder
  4. NEOMYCIN;POLYMYXIN B [Concomitant]
     Indication: Hypersensitivity
  5. PATADAY [Concomitant]
     Active Substance: OLOPATADINE HYDROCHLORIDE
     Indication: Dry eye

REACTIONS (4)
  - Hypersensitivity [Recovered/Resolved]
  - Conjunctivitis [Recovered/Resolved]
  - Ocular hyperaemia [Recovering/Resolving]
  - Eyelid margin crusting [Recovered/Resolved]

NARRATIVE: CASE EVENT DATE: 20240601
